FAERS Safety Report 5010254-9 (Version None)
Quarter: 2006Q2

REPORT INFORMATION
  Report Type: 
  Country: None (occurrence: None)
  Receive Date: 20060404
  Receipt Date: 20051123
  Transmission Date: 20061013
  Serious: No
  Sender: FDA-Public Use
  Company Number: US200512000112

PATIENT
  Age: 8 Month
  Sex: 0

DRUGS (2)
  1. CYMBALTA [Suspect]
     Dosage: TRANSMAMMARY
     Route: 063
     Dates: start: 20051103, end: 20051117
  2. TYLENOL /USA/ (PARACETAMOL) [Concomitant]

REACTIONS (2)
  - DRUG EXPOSURE VIA BREAST MILK [None]
  - SOMNOLENCE [None]
